FAERS Safety Report 4983696-5 (Version None)
Quarter: 2006Q2

REPORT INFORMATION
  Report Type: 
  Country: None (occurrence: None)
  Receive Date: 20060425
  Receipt Date: 20060425
  Transmission Date: 20061013
  Serious: Yes (Other)
  Sender: FDA-Public Use
  Company Number: None

PATIENT
  Age: 33 Year
  Sex: Female
  Weight: 65.7716 kg

DRUGS (1)
  1. CIPRO [Suspect]
     Indication: URINARY TRACT INFECTION
     Dosage: 500 MG 2 TIMES A DAY PO
     Route: 048
     Dates: start: 20060422, end: 20060422

REACTIONS (4)
  - ARTHRALGIA [None]
  - CRYING [None]
  - DYSSTASIA [None]
  - SHOULDER PAIN [None]
